FAERS Safety Report 4274136-2 (Version None)
Quarter: 2004Q1

REPORT INFORMATION
  Report Type: 
  Country: None (occurrence: None)
  Receive Date: 20040120
  Receipt Date: 20040112
  Transmission Date: 20041129
  Serious: Yes (Other)
  Sender: FDA-Public Use
  Company Number: FR-BRISTOL-MYERS SQUIBB COMPANY-12478020

PATIENT
  Age: 58 Year
  Sex: Male

DRUGS (1)
  1. ELISOR TABS 20 MG [Suspect]
     Route: 048

REACTIONS (1)
  - MIXED CONNECTIVE TISSUE DISEASE [None]
